FAERS Safety Report 13099786 (Version 1)
Quarter: 2017Q1

REPORT INFORMATION
  Report Type: Spontaneous
  Country: US (occurrence: US)
  Receive Date: 20170110
  Receipt Date: 20170110
  Transmission Date: 20170428
  Serious: No
  Sender: FDA-Public Use
  Company Number: US-DENTSPLY PHARMACEUTICAL-2016SCDP000164

PATIENT
  Sex: Female

DRUGS (1)
  1. ORAQIX [Suspect]
     Active Substance: LIDOCAINE\PRILOCAINE
     Indication: PRODUCT USED FOR UNKNOWN INDICATION
     Dosage: UNK
     Route: 061
     Dates: start: 20160708, end: 20160708

REACTIONS (6)
  - Aphonia [Recovered/Resolved]
  - Wrong technique in product usage process [Unknown]
  - Erythema [Recovering/Resolving]
  - Accidental exposure to product [Unknown]
  - Dysphonia [Unknown]
  - Skin mass [None]

NARRATIVE: CASE EVENT DATE: 20160708
